FAERS Safety Report 12951335 (Version 1)
Quarter: 2016Q4

REPORT INFORMATION
  Report Type: Spontaneous
  Country: FR (occurrence: FR)
  Receive Date: 20161117
  Receipt Date: 20161117
  Transmission Date: 20170207
  Serious: Yes (Hospitalization)
  Sender: FDA-Public Use
  Company Number: FR-PFIZER INC-2016522890

PATIENT
  Age: 73 Year
  Sex: Female

DRUGS (7)
  1. BACTRIM [Concomitant]
     Active Substance: SULFAMETHOXAZOLE\TRIMETHOPRIM
  2. SOLU-MEDROL [Concomitant]
     Active Substance: METHYLPREDNISOLONE SODIUM SUCCINATE
  3. ENDOXAN /00021101/ [Concomitant]
     Active Substance: CYCLOPHOSPHAMIDE
  4. ZELITREX [Concomitant]
     Active Substance: VALACYCLOVIR HYDROCHLORIDE
  5. IMUREL /00001501/ [Suspect]
     Active Substance: AZATHIOPRINE SODIUM
     Indication: MICROSCOPIC POLYANGIITIS
     Dosage: UNK
     Route: 048
     Dates: start: 201609, end: 201610
  6. LYRICA [Suspect]
     Active Substance: PREGABALIN
     Indication: DYSAESTHESIA
     Dosage: UNK
     Route: 048
     Dates: start: 201605
  7. LYRICA [Suspect]
     Active Substance: PREGABALIN
     Dosage: UNK
     Route: 048
     Dates: start: 201606, end: 201610

REACTIONS (2)
  - Hepatitis [Not Recovered/Not Resolved]
  - Cholestasis [Not Recovered/Not Resolved]

NARRATIVE: CASE EVENT DATE: 201610
